FAERS Safety Report 6306943-6 (Version None)
Quarter: 2009Q3

REPORT INFORMATION
  Report Type: 
  Country: None (occurrence: None)
  Receive Date: 20090812
  Receipt Date: 20090730
  Transmission Date: 20100115
  Serious: Yes (Hospitalization)
  Sender: FDA-Public Use
  Company Number: JP-SOLVAY-00309001800

PATIENT
  Age: 23240 Day
  Sex: Male
  Weight: 39 kg

DRUGS (13)
  1. URSO 250 [Concomitant]
     Indication: HEPATOBILIARY DISEASE
     Dosage: DAILY DOSE: 300 MILLIGRAM(S)
     Route: 048
     Dates: start: 20080520, end: 20090325
  2. CREON [Suspect]
     Indication: PANCREATIC INSUFFICIENCY
     Dosage: DAILY DOSE: 4-14 CAPSULES, AS USED: 2-4 CAPSULES, FREQUENCY: 1-4 TIMES/DAY
     Route: 048
     Dates: start: 20080603, end: 20090325
  3. WARFARIN SODIUM [Suspect]
     Indication: PORTAL VEIN THROMBOSIS
     Dosage: DAILY DOSE: 1 MILLIGRAM(S)
     Route: 048
     Dates: start: 20080617, end: 20090325
  4. OPIUM TINCTURE [Concomitant]
     Indication: DIARRHOEA
     Dosage: DAILY DOSE: 1.5 MILLILITRE(S)
     Route: 048
     Dates: start: 20080520, end: 20090325
  5. MOHRUS TAPE [Concomitant]
     Indication: PAIN IN EXTREMITY
     Dosage: DAILY DOSE: 1 DOSAGE FORM
     Route: 062
     Dates: start: 20080729
  6. SANCOBA [Concomitant]
     Indication: ASTHENOPIA
     Dosage: DAILY DOSE:  UNKNOWN; AS USED : ADEQUATE DOSE, FREQUENCY: AS NEEDED, ROUTE: EL
     Route: 050
     Dates: start: 20080916, end: 20081001
  7. BUSCOPAN [Concomitant]
     Indication: ABDOMINAL ADHESIONS
     Dosage: DAILY DOSE:  20 MILLIGRAM, AS USED: 20 MILLIGRAMS, FREQUENCY: AS NEEDED
     Route: 048
     Dates: start: 20090210, end: 20090325
  8. TOUGHMAC E [Concomitant]
     Indication: PANCREATIC INSUFFICIENCY
     Dosage: DAILY DOSE:  4-6 CAPSULES, AS USED: 2 CAPSULES, FREQUENCY: 2 OR 3 TIMES PER DAY
     Route: 048
     Dates: start: 20080520, end: 20080603
  9. OMNIPAQUE 300 [Concomitant]
     Indication: ILL-DEFINED DISORDER
     Dosage: DAILY DOSE: 74 MILLILITRE(S)
     Route: 042
     Dates: start: 20080603, end: 20080603
  10. OMNIPAQUE 300 [Concomitant]
     Dosage: DAILY DOSE: 75 MILLILITRE(S)
     Route: 042
     Dates: start: 20080826, end: 20080826
  11. OMNIPAQUE 300 [Concomitant]
     Dosage: DAILY DOSE: 74.8 MILLILITRE(S)
     Route: 042
     Dates: start: 20081118, end: 20081118
  12. OMNIPAQUE 300 [Concomitant]
     Dosage: DAILY DOSE: 76.2 MILLILITRE(S)
     Route: 042
     Dates: start: 20090217, end: 20090217
  13. MYDRIN P [Concomitant]
     Indication: ILL-DEFINED DISORDER
     Dosage: DAILY DOSE:  ADEQUATE DOSE, AS USED: ADEQUATE DOSE FREQUENCY: AS NEEDED, ROUTE: EL
     Route: 050
     Dates: start: 20080916, end: 20080916

REACTIONS (16)
  - ABDOMINAL ADHESIONS [None]
  - ANGIOPATHY [None]
  - ASCITES [None]
  - ASTHENOPIA [None]
  - CATARACT [None]
  - CONTUSION [None]
  - DIVERTICULUM INTESTINAL [None]
  - HYPERURICAEMIA [None]
  - INSOMNIA [None]
  - MYODESOPSIA [None]
  - NAUSEA [None]
  - PAIN IN EXTREMITY [None]
  - PORTAL HYPERTENSION [None]
  - PORTAL VEIN THROMBOSIS [None]
  - PYREXIA [None]
  - VOMITING [None]
